FAERS Safety Report 20245906 (Version 2)
Quarter: 2022Q1

REPORT INFORMATION
  Report Type: Spontaneous
  Country: DE (occurrence: DE)
  Receive Date: 20211229
  Receipt Date: 20220305
  Transmission Date: 20220423
  Serious: Yes (Hospitalization, Other)
  Sender: FDA-Public Use
  Company Number: DE-NOVARTISPH-NVSC2021DE297304

PATIENT
  Age: 51 Year
  Sex: Male

DRUGS (2)
  1. GILENYA [Suspect]
     Active Substance: FINGOLIMOD HYDROCHLORIDE
     Indication: Relapsing-remitting multiple sclerosis
     Dosage: 1 DOSAGE FORM, QD
     Route: 048
     Dates: start: 20190320, end: 20211219
  2. GILENYA [Suspect]
     Active Substance: FINGOLIMOD HYDROCHLORIDE
     Dosage: 1 DOSAGE FORM, QD
     Route: 048
     Dates: start: 20220111

REACTIONS (26)
  - COVID-19 pneumonia [Unknown]
  - Dyspnoea [Unknown]
  - Tachypnoea [Recovered/Resolved]
  - Respiratory failure [Recovered/Resolved]
  - Oxygen saturation abnormal [Recovered/Resolved]
  - Acute respiratory distress syndrome [Recovered/Resolved]
  - N-terminal prohormone brain natriuretic peptide increased [Unknown]
  - Granulocyte count increased [Unknown]
  - Troponin T increased [Unknown]
  - Blood lactate dehydrogenase increased [Recovering/Resolving]
  - Protein total decreased [Not Recovered/Not Resolved]
  - Blood albumin decreased [Unknown]
  - Pulmonary embolism [Recovered/Resolved]
  - Tracheobronchitis [Unknown]
  - Prothrombin time abnormal [Unknown]
  - Sleep apnoea syndrome [Unknown]
  - Blood glucose increased [Recovering/Resolving]
  - Hepatic steatosis [Unknown]
  - General physical condition abnormal [Recovering/Resolving]
  - Vomiting [Unknown]
  - Haemoglobin decreased [Unknown]
  - Haematocrit decreased [Unknown]
  - Hepatitis B antibody abnormal [Unknown]
  - Bundle branch block left [Unknown]
  - Cough [Unknown]
  - Diarrhoea [Recovered/Resolved]

NARRATIVE: CASE EVENT DATE: 20211201
